FAERS Safety Report 19495722 (Version 1)
Quarter: 2021Q3

REPORT INFORMATION
  Report Type: Spontaneous
  Country: DE (occurrence: DE)
  Receive Date: 20210706
  Receipt Date: 20210706
  Transmission Date: 20211014
  Serious: Yes (Hospitalization)
  Sender: FDA-Public Use
  Company Number: DE-TEVA-2021-DE-1929116

PATIENT
  Age: 79 Year
  Sex: Male

DRUGS (3)
  1. VITAMIN B12?RATIOPHARM [Concomitant]
     Dosage: 200 MICROGRAM DAILY; 1?0?0?0
     Route: 048
  2. CIPROFLOXACIN. [Suspect]
     Active Substance: CIPROFLOXACIN
     Dosage: 500 MG,
     Route: 048
  3. PANTOPRAZOL [Concomitant]
     Active Substance: PANTOPRAZOLE SODIUM
     Dosage: 20 MILLIGRAM DAILY; 1?0?0?0
     Route: 048

REACTIONS (4)
  - Renal impairment [Unknown]
  - Urine odour abnormal [Unknown]
  - Taste disorder [Unknown]
  - Weight decreased [Unknown]
